FAERS Safety Report 10209476 (Version 1)
Quarter: 2014Q2

REPORT INFORMATION
  Report Type: Spontaneous
  Country: US (occurrence: US)
  Receive Date: 20140601
  Receipt Date: 20140601
  Transmission Date: 20141212
  Serious: No
  Sender: FDA-Public Use
  Company Number: US-009507513-1405USA012306

PATIENT
  Sex: Female

DRUGS (4)
  1. CLARITIN [Suspect]
     Indication: SEASONAL ALLERGY
     Dosage: 10 MG, UNKNOWN
     Route: 048
  2. CLARITIN [Suspect]
     Indication: MYCOTIC ALLERGY
  3. CLARITIN [Suspect]
     Indication: HOUSE DUST ALLERGY
  4. CLARITIN [Suspect]
     Indication: URTICARIA

REACTIONS (3)
  - Anxiety [Recovered/Resolved]
  - Dizziness [Recovered/Resolved]
  - Therapeutic response changed [Unknown]
